FAERS Safety Report 19623145 (Version 2)
Quarter: 2022Q1

REPORT INFORMATION
  Report Type: Spontaneous
  Country: CA (occurrence: CA)
  Receive Date: 20210728
  Receipt Date: 20220310
  Transmission Date: 20220423
  Serious: Yes (Other)
  Sender: FDA-Public Use
  Company Number: CA-ABBVIE-21K-028-4012671-00

PATIENT
  Sex: Female
  Weight: 45 kg

DRUGS (10)
  1. HUMIRA [Suspect]
     Active Substance: ADALIMUMAB
     Indication: Colitis ulcerative
     Route: 058
     Dates: start: 201812, end: 201907
  2. HUMIRA [Suspect]
     Active Substance: ADALIMUMAB
     Route: 058
  3. ASACOL [Suspect]
     Active Substance: MESALAMINE
     Indication: Product used for unknown indication
     Route: 065
  4. XELJANZ [Suspect]
     Active Substance: TOFACITINIB CITRATE
     Indication: Colitis ulcerative
     Route: 048
     Dates: start: 20190809, end: 201911
  5. XELJANZ [Suspect]
     Active Substance: TOFACITINIB CITRATE
     Route: 048
     Dates: start: 201911, end: 2020
  6. XELJANZ [Suspect]
     Active Substance: TOFACITINIB CITRATE
     Route: 048
     Dates: start: 2020
  7. PREDNISONE [Concomitant]
     Active Substance: PREDNISONE
     Indication: Product used for unknown indication
  8. MESALAMINE [Concomitant]
     Active Substance: MESALAMINE
     Indication: Colitis ulcerative
     Dates: start: 2008
  9. MESALAMINE [Concomitant]
     Active Substance: MESALAMINE
     Dates: start: 201812, end: 201907
  10. MESALAMINE [Concomitant]
     Active Substance: MESALAMINE

REACTIONS (15)
  - Faecal calprotectin increased [Unknown]
  - Impaired work ability [Unknown]
  - Impaired quality of life [Unknown]
  - Drug ineffective [Unknown]
  - Rectal haemorrhage [Recovering/Resolving]
  - Dry mouth [Unknown]
  - Haematochezia [Unknown]
  - Flatulence [Unknown]
  - Abdominal discomfort [Unknown]
  - Abdominal pain [Unknown]
  - Colitis ulcerative [Unknown]
  - Investigation abnormal [Recovering/Resolving]
  - Drug ineffective [Unknown]
  - Haematochezia [Unknown]
  - Condition aggravated [Unknown]
